FAERS Safety Report 20794382 (Version 1)
Quarter: 2022Q2

REPORT INFORMATION
  Report Type: Spontaneous
  Country: US (occurrence: US)
  Receive Date: 20220506
  Receipt Date: 20220506
  Transmission Date: 20220720
  Serious: No
  Sender: FDA-Public Use
  Company Number: US-UCBSA-2021052843

PATIENT
  Age: 46 Year
  Sex: Female
  Weight: 85.261 kg

DRUGS (1)
  1. CIMZIA [Suspect]
     Active Substance: CERTOLIZUMAB PEGOL
     Indication: Rheumatoid arthritis
     Dosage: 400 MILLIGRAM, EV 4 WEEKS
     Route: 058
     Dates: start: 202107

REACTIONS (3)
  - Emergency care [Unknown]
  - Headache [Unknown]
  - Therapy cessation [Unknown]

NARRATIVE: CASE EVENT DATE: 20210930
